FAERS Safety Report 6107402-6 (Version None)
Quarter: 2009Q1

REPORT INFORMATION
  Report Type: 
  Country: None (occurrence: None)
  Receive Date: 20090306
  Receipt Date: 20090306
  Transmission Date: 20090719
  Serious: Yes (Hospitalization, Other)
  Sender: FDA-Public Use
  Company Number: None

PATIENT
  Age: 56 Year
  Sex: Female
  Weight: 88.4514 kg

DRUGS (1)
  1. CYMBALTA [Suspect]
     Indication: MENTAL DISORDER
     Dosage: 60 MG TWICE A DAY ORAL
     Route: 048
     Dates: start: 20080701, end: 20080801

REACTIONS (5)
  - BACK PAIN [None]
  - CONVULSION [None]
  - LOSS OF CONSCIOUSNESS [None]
  - NECK PAIN [None]
  - ROAD TRAFFIC ACCIDENT [None]
